FAERS Safety Report 6924602-3 (Version None)
Quarter: 2010Q3

REPORT INFORMATION
  Report Type: 
  Country: None (occurrence: None)
  Receive Date: 20100813
  Receipt Date: 20100809
  Transmission Date: 20110219
  Serious: Yes (Hospitalization, Other)
  Sender: FDA-Public Use
  Company Number: US-AMGEN-QUU430103

PATIENT
  Sex: Female

DRUGS (9)
  1. NPLATE [Suspect]
     Indication: IDIOPATHIC THROMBOCYTOPENIC PURPURA
     Dates: start: 20100520
  2. ACETAMINOPHEN [Concomitant]
  3. PANTOPRAZOLE [Concomitant]
  4. SENNA [Concomitant]
  5. DOCUSATE [Concomitant]
  6. MIRALAX [Concomitant]
  7. ONDANSETRON [Concomitant]
  8. AZACITIDINE [Concomitant]
  9. ZOMETA [Concomitant]

REACTIONS (9)
  - ARTHRALGIA [None]
  - BLOOD ALKALINE PHOSPHATASE INCREASED [None]
  - CONTUSION [None]
  - EPISTAXIS [None]
  - LIPOSARCOMA METASTATIC [None]
  - NEUTROPENIA [None]
  - OSTEONECROSIS [None]
  - PANCYTOPENIA [None]
  - PYREXIA [None]
